FAERS Safety Report 4945477-8 (Version None)
Quarter: 2006Q1

REPORT INFORMATION
  Report Type: 
  Country: None (occurrence: None)
  Receive Date: 20060316
  Receipt Date: 20060310
  Transmission Date: 20060701
  Serious: Yes (Life-Threatening)
  Sender: FDA-Public Use
  Company Number: FR-GLAXOSMITHKLINE-B0415557A

PATIENT
  Age: 70 Year
  Sex: Female

DRUGS (5)
  1. ZINNAT [Suspect]
     Indication: BRONCHITIS
     Dosage: 250MG PER DAY
     Route: 048
     Dates: start: 20060224
  2. AVLOCARDYL [Concomitant]
     Dosage: 20MG TWICE PER DAY
     Route: 048
  3. SERETIDE [Concomitant]
     Route: 065
  4. FLECAINIDE ACETATE [Concomitant]
     Route: 065
  5. ATROVENT [Concomitant]
     Route: 065

REACTIONS (7)
  - BLOOD PRESSURE IMMEASURABLE [None]
  - FACE OEDEMA [None]
  - HYPERSENSITIVITY [None]
  - PRURITUS [None]
  - RASH [None]
  - SHOCK [None]
  - TACHYCARDIA [None]
